FAERS Safety Report 16542940 (Version 1)
Quarter: 2019Q3

REPORT INFORMATION
  Report Type: Spontaneous
  Country: US (occurrence: US)
  Receive Date: 20190709
  Receipt Date: 20190709
  Transmission Date: 20191004
  Serious: Yes (Hospitalization, Other)
  Sender: FDA-Public Use
  Company Number: US-SA-2019SA183123

PATIENT
  Age: 51 Year
  Sex: Female
  Weight: 66.67 kg

DRUGS (1)
  1. FABRAZYME [Suspect]
     Active Substance: AGALSIDASE BETA
     Indication: LIPIDOSIS
     Dosage: 70 MG, QOW
     Route: 042
     Dates: start: 201809

REACTIONS (1)
  - Pulmonary embolism [Unknown]
